FAERS Safety Report 8455673-3 (Version None)
Quarter: 2012Q2

REPORT INFORMATION
  Report Type: 
  Country: None (occurrence: None)
  Receive Date: 20120621
  Receipt Date: 20120612
  Transmission Date: 20120825
  Serious: Yes (Hospitalization)
  Sender: FDA-Public Use
  Company Number: CA-JNJFOC-20120606617

PATIENT
  Sex: Male
  Weight: 59 kg

DRUGS (5)
  1. CALCIUM [Concomitant]
     Route: 065
  2. VITAMIN [Concomitant]
     Dosage: DOSE:125U
     Route: 065
  3. ACTONEL [Concomitant]
     Route: 065
  4. PALAFER CF [Concomitant]
     Route: 065
  5. REMICADE [Suspect]
     Indication: CROHN'S DISEASE
     Route: 042
     Dates: start: 20100531

REACTIONS (1)
  - SMALL INTESTINAL RESECTION [None]
